FAERS Safety Report 12725200 (Version 1)
Quarter: 2016Q3

REPORT INFORMATION
  Report Type: Spontaneous
  Country: US (occurrence: US)
  Receive Date: 20160907
  Receipt Date: 20160907
  Transmission Date: 20161109
  Serious: Yes (Disabling)
  Sender: FDA-Public Use
  Company Number: None

PATIENT
  Age: 62 Year
  Sex: Male
  Weight: 78.75 kg

DRUGS (2)
  1. MULTI VITAMINS [Concomitant]
     Active Substance: VITAMINS
  2. NEXIUM [Suspect]
     Active Substance: ESOMEPRAZOLE MAGNESIUM
     Indication: BARRETT^S OESOPHAGUS
     Dosage: 1 PILL
     Route: 048
     Dates: start: 20090417

REACTIONS (1)
  - Spinal compression fracture [None]

NARRATIVE: CASE EVENT DATE: 20160206
